FAERS Safety Report 9592299 (Version 2)
Quarter: 2013Q4

REPORT INFORMATION
  Report Type: Spontaneous
  Country: AR (occurrence: AR)
  Receive Date: 20131004
  Receipt Date: 20131028
  Transmission Date: 20140711
  Serious: Yes (Death)
  Sender: FDA-Public Use
  Company Number: AR-SHIRE-ALL1-2013-06789

PATIENT
  Sex: Female

DRUGS (1)
  1. VPRIV [Suspect]
     Indication: GAUCHER^S DISEASE
     Dosage: UNK, UNKNOWN
     Route: 041
     Dates: start: 201304

REACTIONS (2)
  - Respiratory tract infection [Fatal]
  - Off label use [Unknown]
